FAERS Safety Report 24156989 (Version 1)
Quarter: 2024Q3

REPORT INFORMATION
  Report Type: Spontaneous
  Country: GB (occurrence: GB)
  Receive Date: 20240731
  Receipt Date: 20240731
  Transmission Date: 20241016
  Serious: Yes (Other)
  Sender: AMICUS THERAPEUTICS
  Company Number: GB-AMICUS THERAPEUTICS, INC.-AMI_3264

PATIENT

DRUGS (1)
  1. MIGALASTAT HYDROCHLORIDE [Suspect]
     Active Substance: MIGALASTAT HYDROCHLORIDE
     Indication: Fabry^s disease
     Dosage: UNK
     Route: 048

REACTIONS (1)
  - Urine albumin/creatinine ratio increased [Unknown]
